FAERS Safety Report 20252735 (Version 1)
Quarter: 2021Q4

REPORT INFORMATION
  Report Type: Spontaneous
  Country: CN (occurrence: CN)
  Receive Date: 20211229
  Receipt Date: 20211229
  Transmission Date: 20220304
  Serious: Yes (Other)
  Sender: FDA-Public Use
  Company Number: CN-009507513-2112CHN009096

PATIENT
  Age: 28 Year
  Sex: Female
  Weight: 55 kg

DRUGS (3)
  1. CILASTATIN SODIUM\IMIPENEM [Suspect]
     Active Substance: CILASTATIN SODIUM\IMIPENEM
     Indication: Anti-infective therapy
     Dosage: 1 GRAM, THREE TIMES A DAY
     Route: 041
     Dates: start: 20211014, end: 20211021
  2. GANCICLOVIR [Suspect]
     Active Substance: GANCICLOVIR
     Indication: Anti-infective therapy
     Dosage: 300 MILLIGRAM, DAILY
     Route: 041
     Dates: start: 20211013, end: 20211021
  3. VORICONAZOLE [Suspect]
     Active Substance: VORICONAZOLE
     Indication: Anti-infective therapy
     Dosage: 200 MG, TWICE A DAY
     Route: 048
     Dates: start: 20211020, end: 20211021

REACTIONS (1)
  - Epilepsy [Recovering/Resolving]

NARRATIVE: CASE EVENT DATE: 20211021
